FAERS Safety Report 20859508 (Version 1)
Quarter: 2022Q2

REPORT INFORMATION
  Report Type: Spontaneous
  Country: US (occurrence: US)
  Receive Date: 20220523
  Receipt Date: 20220523
  Transmission Date: 20220721
  Serious: Yes (Hospitalization)
  Sender: FDA-Public Use
  Company Number: US-BRISTOL-MYERS SQUIBB COMPANY-2022-037225

PATIENT
  Age: 33 Year
  Sex: Male

DRUGS (1)
  1. NULOJIX [Suspect]
     Active Substance: BELATACEPT
     Indication: Lung transplant
     Dosage: DOSE : 525MG;     FREQ : EVERY 28 DAYS
     Route: 042

REACTIONS (2)
  - COVID-19 [Unknown]
  - Intentional product use issue [Unknown]

NARRATIVE: CASE EVENT DATE: 20220501
